FAERS Safety Report 8301733-7 (Version None)
Quarter: 2012Q2

REPORT INFORMATION
  Report Type: 
  Country: None (occurrence: None)
  Receive Date: 20120420
  Receipt Date: 20120412
  Transmission Date: 20120825
  Serious: Yes (Hospitalization)
  Sender: FDA-Public Use
  Company Number: US-ACTELION-A-US2011-56542

PATIENT

DRUGS (4)
  1. TRACLEER [Suspect]
     Indication: PULMONARY ARTERIAL HYPERTENSION
     Dosage: UNK
     Route: 048
     Dates: start: 20021001
  2. COUMADIN [Concomitant]
  3. ADCIRCA [Concomitant]
  4. CALCIUM CHANNEL BLOCKERS [Concomitant]

REACTIONS (7)
  - PAIN [None]
  - LUNG CARCINOMA CELL TYPE UNSPECIFIED STAGE IV [None]
  - PULMONARY OEDEMA [None]
  - DYSPNOEA [None]
  - NEOPLASM MALIGNANT [None]
  - HIGH FREQUENCY ABLATION [None]
  - MALAISE [None]
